FAERS Safety Report 15620317 (Version 1)
Quarter: 2018Q4

REPORT INFORMATION
  Report Type: Spontaneous
  Country: US (occurrence: US)
  Receive Date: 20181115
  Receipt Date: 20181115
  Transmission Date: 20190205
  Serious: No
  Sender: FDA-Public Use
  Company Number: US-ELI_LILLY_AND_COMPANY-US201811005869

PATIENT
  Age: 72 Year
  Sex: Male

DRUGS (4)
  1. METFORMIN [Concomitant]
     Active Substance: METFORMIN HYDROCHLORIDE
     Indication: TYPE 2 DIABETES MELLITUS
     Dosage: 500 MG, BID
  2. GLIPIZIDE. [Concomitant]
     Active Substance: GLIPIZIDE
     Indication: TYPE 2 DIABETES MELLITUS
     Dosage: 10 MG, BID
  3. BASAGLAR [Suspect]
     Active Substance: INSULIN GLARGINE
     Indication: TYPE 2 DIABETES MELLITUS
     Dosage: 90 U, DAILY
     Route: 058
     Dates: start: 201712
  4. BASAGLAR [Suspect]
     Active Substance: INSULIN GLARGINE
     Dosage: 90 U, DAILY
     Route: 058
     Dates: start: 201712

REACTIONS (3)
  - Injection site pain [Recovered/Resolved]
  - Weight increased [Unknown]
  - Product storage error [Unknown]

NARRATIVE: CASE EVENT DATE: 201712
